FAERS Safety Report 9382255 (Version 2)
Quarter: 2013Q3

REPORT INFORMATION
  Report Type: Spontaneous
  Country: DK (occurrence: FR)
  Receive Date: 20130703
  Receipt Date: 20130711
  Transmission Date: 20140515
  Serious: Yes (Life-Threatening)
  Sender: FDA-Public Use
  Company Number: FR-FRI-1000046428

PATIENT
  Age: 63 Year
  Sex: Male

DRUGS (6)
  1. ESCITALOPRAM [Suspect]
     Route: 048
  2. LIORESAL [Suspect]
     Route: 048
  3. TRANXENE [Suspect]
     Route: 048
  4. MONOCRIXO [Suspect]
     Route: 048
  5. LYRICA [Suspect]
     Route: 048
  6. HALDOL [Suspect]
     Route: 048

REACTIONS (7)
  - Coma [Recovered/Resolved]
  - Hypothermia [Recovered/Resolved]
  - Hallucination [Recovered/Resolved]
  - Sinus bradycardia [Recovered/Resolved]
  - Extrapyramidal disorder [Recovered/Resolved]
  - Hypertension [Recovered/Resolved]
  - Intentional overdose [Recovered/Resolved]
